FAERS Safety Report 7076998-2 (Version None)
Quarter: 2010Q4

REPORT INFORMATION
  Report Type: 
  Country: None (occurrence: None)
  Receive Date: 20101022
  Receipt Date: 20101007
  Transmission Date: 20110411
  Serious: Yes (Death, Other)
  Sender: FDA-Public Use
  Company Number: 721902

PATIENT
  Sex: Male

DRUGS (9)
  1. HEPARIN SODIUM [Suspect]
     Indication: CATHETERISATION CARDIAC
     Dosage: 5000UNITS,; 5000UNITS IN 500ML, INTRAVENOUS DRIP
     Route: 041
     Dates: start: 20080601
  2. HEPARIN SODIUM [Suspect]
     Indication: CORONARY ARTERY BYPASS
     Dosage: 5000UNITS,; 5000UNITS IN 500ML, INTRAVENOUS DRIP
     Route: 041
     Dates: start: 20080601
  3. HEPARIN SODIUM [Suspect]
     Indication: SURGERY
     Dosage: 5000UNITS,; 5000UNITS IN 500ML, INTRAVENOUS DRIP
     Route: 041
     Dates: start: 20080601
  4. HEPARIN SODIUM [Suspect]
     Indication: CATHETERISATION CARDIAC
     Dosage: 5000UNITS,; 5000UNITS IN 500ML, INTRAVENOUS DRIP
     Route: 041
     Dates: start: 20080609
  5. HEPARIN SODIUM [Suspect]
     Indication: CORONARY ARTERY BYPASS
     Dosage: 5000UNITS,; 5000UNITS IN 500ML, INTRAVENOUS DRIP
     Route: 041
     Dates: start: 20080609
  6. HEPARIN SODIUM [Suspect]
     Indication: SURGERY
     Dosage: 5000UNITS,; 5000UNITS IN 500ML, INTRAVENOUS DRIP
     Route: 041
     Dates: start: 20080609
  7. HEPARIN SODIUM [Suspect]
     Indication: CATHETERISATION CARDIAC
     Dosage: 5000UNITS,; 5000UNITS IN 500ML, INTRAVENOUS DRIP
     Route: 041
     Dates: start: 20080610
  8. HEPARIN SODIUM [Suspect]
     Indication: CORONARY ARTERY BYPASS
     Dosage: 5000UNITS,; 5000UNITS IN 500ML, INTRAVENOUS DRIP
     Route: 041
     Dates: start: 20080610
  9. HEPARIN SODIUM [Suspect]
     Indication: SURGERY
     Dosage: 5000UNITS,; 5000UNITS IN 500ML, INTRAVENOUS DRIP
     Route: 041
     Dates: start: 20080610

REACTIONS (12)
  - ABDOMINAL DISTENSION [None]
  - ATRIAL FIBRILLATION [None]
  - COMPARTMENT SYNDROME [None]
  - HEPARIN-INDUCED THROMBOCYTOPENIA [None]
  - HEPATIC FAILURE [None]
  - HEPATIC ISCHAEMIA [None]
  - HYPOTENSION [None]
  - LACTIC ACIDOSIS [None]
  - LIVEDO RETICULARIS [None]
  - MULTI-ORGAN FAILURE [None]
  - RENAL FAILURE ACUTE [None]
  - RENAL ISCHAEMIA [None]
